FAERS Safety Report 6108175-3 (Version None)
Quarter: 2009Q1

REPORT INFORMATION
  Report Type: 
  Country: None (occurrence: None)
  Receive Date: 20090309
  Receipt Date: 20090223
  Transmission Date: 20090719
  Serious: Yes (Hospitalization, Other)
  Sender: FDA-Public Use
  Company Number: US-ROCHE-605283

PATIENT
  Sex: Female
  Weight: 79.4 kg

DRUGS (1)
  1. CAPECITABINE [Suspect]
     Indication: BREAST CANCER
     Dosage: TDD: TWO TABLETS OF 500 MG AND FOUR TABLETS OF 150 MG
     Route: 065
     Dates: start: 20071015

REACTIONS (3)
  - FALL [None]
  - HIP FRACTURE [None]
  - METASTASIS [None]
